FAERS Safety Report 22597695 (Version 1)
Quarter: 2023Q2

REPORT INFORMATION
  Report Type: Report from Study
  Country: US (occurrence: US)
  Receive Date: 20230614
  Receipt Date: 20230614
  Transmission Date: 20230721
  Serious: Yes (Other)
  Sender: FDA-Public Use
  Company Number: US-ABBVIE-4346469

PATIENT
  Age: 60 Year
  Sex: Male
  Weight: 81.192 kg

DRUGS (5)
  1. HUMIRA [Suspect]
     Active Substance: ADALIMUMAB
     Indication: Psoriasis
     Route: 058
     Dates: start: 20090601
  2. ROSUVASTATIN [Concomitant]
     Active Substance: ROSUVASTATIN
     Indication: Product used for unknown indication
     Dosage: FORM STRENGTH: 40 MILLIGRAM?FREQUENCY TEXT: DAILY
     Route: 048
  3. COREG [Concomitant]
     Active Substance: CARVEDILOL
     Indication: Product used for unknown indication
     Dosage: FORM STRENGTH: 25 MILLIGRAM, FREQUENCY TEXT: 2 IN 1 DAYS
     Route: 048
  4. NORVASC [Concomitant]
     Active Substance: AMLODIPINE BESYLATE
     Indication: Product used for unknown indication
     Dosage: FORM STRENGTH: 5 MILLIGRAM?FREQUENCY TEXT: DAILY
     Route: 048
     Dates: start: 202110
  5. PANTOPRAZOLE [Concomitant]
     Active Substance: PANTOPRAZOLE
     Indication: Product used for unknown indication
     Dosage: FORM STRENGTH: 40 MILLIGRAM
     Route: 048
     Dates: start: 2019

REACTIONS (6)
  - Pleurisy [Recovered/Resolved]
  - COVID-19 [Recovered/Resolved]
  - Dyspnoea [Unknown]
  - Painful respiration [Unknown]
  - Chest pain [Unknown]
  - Cough [Unknown]

NARRATIVE: CASE EVENT DATE: 20230224
